FAERS Safety Report 8082837-3 (Version None)
Quarter: 2012Q1

REPORT INFORMATION
  Report Type: 
  Country: None (occurrence: None)
  Receive Date: 20120127
  Receipt Date: 20110121
  Transmission Date: 20120608
  Serious: No
  Sender: FDA-Public Use
  Company Number: US-ABBOTT-11P-163-0700425-00

PATIENT
  Sex: Female
  Weight: 108.96 kg

DRUGS (10)
  1. LYRICA [Concomitant]
     Indication: FIBROMYALGIA
  2. HUMIRA [Suspect]
     Indication: RHEUMATOID ARTHRITIS
     Dosage: THE PATIENT TOOK WEEKLY DOSING INSTEAD OF EVERY OTHER WEEK DOSING.
     Dates: start: 20101201
  3. LIPITOR [Concomitant]
     Indication: BLOOD CHOLESTEROL INCREASED
  4. ACTONEL [Concomitant]
     Indication: BONE DISORDER
  5. METHOTREXATE [Concomitant]
     Indication: RHEUMATOID ARTHRITIS
  6. CALCIUM PLUS VITAMIN D [Concomitant]
     Indication: MINERAL SUPPLEMENTATION
  7. LASIX [Concomitant]
     Indication: FLUID RETENTION
  8. PRANDIN [Concomitant]
     Indication: DIABETES MELLITUS
  9. HYZAAR [Concomitant]
     Indication: HYPERTENSION
  10. METFFORMIN HYDROCHLORIDE [Concomitant]
     Indication: DIABETES MELLITUS

REACTIONS (1)
  - INAPPROPRIATE SCHEDULE OF DRUG ADMINISTRATION [None]
